FAERS Safety Report 24594669 (Version 2)
Quarter: 2024Q4

REPORT INFORMATION
  Report Type: Spontaneous
  Country: US (occurrence: US)
  Receive Date: 20241108
  Receipt Date: 20241112
  Transmission Date: 20250115
  Serious: Yes (Other)
  Sender: BRISTOL-MYERS SQUIBB COMPANY
  Company Number: US-BRISTOL-MYERS SQUIBB COMPANY-2024-172030

PATIENT
  Age: 61 Year
  Sex: Female

DRUGS (3)
  1. DEUCRAVACITINIB [Suspect]
     Active Substance: DEUCRAVACITINIB
     Indication: Psoriasis
     Route: 048
  2. CALCIPOTRIENE [Concomitant]
     Active Substance: CALCIPOTRIENE
     Indication: Psoriasis
     Dosage: TOPICAL CALCIPOTRIENE 0.05% CREAM,
     Route: 061
  3. TAPINAROF [Concomitant]
     Active Substance: TAPINAROF
     Indication: Psoriasis
     Dosage: TAPARIN OF 1% CREAM,
     Route: 061

REACTIONS (1)
  - Cutaneous T-cell lymphoma [Unknown]
